FAERS Safety Report 5893558-7 (Version None)
Quarter: 2008Q3

REPORT INFORMATION
  Report Type: 
  Country: None (occurrence: None)
  Receive Date: 20080923
  Receipt Date: 20080916
  Transmission Date: 20090109
  Serious: Yes (Other)
  Sender: FDA-Public Use
  Company Number: PT-ASTRAZENECA-2008AC02272

PATIENT
  Age: 33173 Day
  Sex: Female
  Weight: 60 kg

DRUGS (15)
  1. MERONEM [Suspect]
     Indication: INFECTION
     Route: 042
     Dates: start: 20080729, end: 20080811
  2. VALPROATE SODIUM [Interacting]
     Indication: MYOCLONUS
     Dosage: PROLONGED RELEASE TABLET
     Route: 048
     Dates: start: 20080621
  3. VALPROATE SODIUM [Interacting]
     Dosage: PROLONGED RELEASE TABLET
     Route: 048
  4. VALPROIC ACID [Interacting]
     Indication: MYOCLONUS
     Dosage: PROLONGED RELAESED TABLET
     Route: 048
     Dates: start: 20080621
  5. VALPROIC ACID [Interacting]
     Dosage: PROLONGED RELAESED TABLET
     Route: 048
  6. FUROSEMIDE [Concomitant]
     Route: 048
  7. PERINDOPRIL ARGININE [Concomitant]
     Route: 048
  8. PREDNISONE [Concomitant]
     Route: 048
  9. CALCITRIOL [Concomitant]
     Route: 048
  10. CALCIUM GLUCONATE [Concomitant]
     Dosage: 1 UNITARY DOSE
     Route: 048
  11. SPIRONOLACTONE [Concomitant]
     Route: 048
  12. MELPERONE [Concomitant]
     Route: 048
  13. LEVOTHYROXINE SODIUM [Concomitant]
     Route: 048
  14. NITROGLYCERIN [Concomitant]
     Dosage: 1 UNITARY DOSE
     Route: 062
  15. OMEPRAZOLE [Concomitant]
     Route: 048

REACTIONS (2)
  - ANTICONVULSANT DRUG LEVEL DECREASED [None]
  - DRUG INTERACTION [None]
